FAERS Safety Report 8105548-4 (Version None)
Quarter: 2012Q1

REPORT INFORMATION
  Report Type: 
  Country: None (occurrence: None)
  Receive Date: 20120201
  Receipt Date: 20120127
  Transmission Date: 20120608
  Serious: Yes (Hospitalization)
  Sender: FDA-Public Use
  Company Number: GB-PFIZER INC-2010090762

PATIENT
  Age: 79 Year
  Sex: Male

DRUGS (13)
  1. METFORMIN HCL [Suspect]
     Indication: DIABETES MELLITUS
     Dosage: 500 MG, 3X/DAY
     Route: 048
  2. FUROSEMIDE [Suspect]
     Indication: FLUID OVERLOAD
     Dosage: 40 MG, 1X/DAY
     Route: 048
  3. ATORVASTATIN CALCIUM [Suspect]
     Indication: HYPERCHOLESTEROLAEMIA
     Dosage: 20 MG, 1X/DAY
     Route: 048
     Dates: end: 20100712
  4. BENDROFLUMETHIAZIDE [Suspect]
     Indication: DIURETIC THERAPY
     Dosage: 2.5 MG, 1X/DAY
     Route: 048
  5. OXYCONTIN [Suspect]
     Dosage: 40 MG, UNK
     Route: 048
     Dates: start: 20100713
  6. PARACETAMOL [Concomitant]
     Dosage: 500 MG, UNK
  7. RAMIPRIL [Suspect]
     Indication: LEFT VENTRICULAR FAILURE
  8. ACETYLSALICYLIC ACID [Concomitant]
     Dosage: 75 MG, 1X/DAY
  9. DOXYCYCLINE [Concomitant]
     Dosage: 100 MG, UNK
  10. RAMIPRIL [Suspect]
     Indication: HYPERTENSION
     Dosage: 7.5 MG, 1X/DAY
     Route: 048
  11. OXYCONTIN [Suspect]
     Indication: PHANTOM PAIN
     Dosage: 40 MG, 2X/DAY
     Route: 048
     Dates: end: 20100711
  12. OXYCODONE HCL [Suspect]
     Indication: BREAKTHROUGH PAIN
     Dosage: 10 MG, THREE OR FOUR TIMES DAILY
     Route: 048
     Dates: end: 20100712
  13. PREGABALIN [Concomitant]
     Dosage: 75 MG, UNK

REACTIONS (11)
  - DEHYDRATION [None]
  - CONFUSIONAL STATE [None]
  - TOXICITY TO VARIOUS AGENTS [None]
  - RENAL FAILURE ACUTE [None]
  - BLOOD CREATINE PHOSPHOKINASE INCREASED [None]
  - SOMNOLENCE [None]
  - MIOSIS [None]
  - ERYTHEMA [None]
  - LOSS OF CONSCIOUSNESS [None]
  - HYPOPHAGIA [None]
  - ACCIDENTAL OVERDOSE [None]
